FAERS Safety Report 6591105-8 (Version None)
Quarter: 2010Q1

REPORT INFORMATION
  Report Type: 
  Country: None (occurrence: None)
  Receive Date: 20100219
  Receipt Date: 20100119
  Transmission Date: 20100710
  Serious: No
  Sender: FDA-Public Use
  Company Number: US-BAYER-201011973NA

PATIENT
  Age: 46 Year
  Sex: Female
  Weight: 64 kg

DRUGS (2)
  1. AVELOX [Suspect]
     Indication: SINUSITIS
     Dosage: AS USED: 400 MG  UNIT DOSE: 400 MG
     Route: 048
     Dates: start: 20091231, end: 20100118
  2. NASONEX [Concomitant]
     Indication: SINUSITIS
     Dosage: METERED SPRAYS
     Route: 045
     Dates: start: 20091231

REACTIONS (1)
  - SINUSITIS [None]
